FAERS Safety Report 15833598 (Version 1)
Quarter: 2019Q1

REPORT INFORMATION
  Report Type: Spontaneous
  Country: GB (occurrence: GB)
  Receive Date: 20190116
  Receipt Date: 20190116
  Transmission Date: 20190417
  Serious: Yes (Hospitalization, Other)
  Sender: FDA-Public Use
  Company Number: GB-TEVA-2019-GB-999095

PATIENT
  Age: 45 Year
  Sex: Female
  Weight: 75.29 kg

DRUGS (12)
  1. CEFALEXIN [Suspect]
     Active Substance: CEPHALEXIN
     Indication: PYELONEPHRITIS
     Route: 041
     Dates: start: 20060106, end: 20060107
  2. AMITRIPTYLINE [Concomitant]
     Active Substance: AMITRIPTYLINE
     Dosage: 70 MILLIGRAM DAILY;
  3. MORPHINE SULFATE. [Concomitant]
     Active Substance: MORPHINE SULFATE
     Dosage: 50 MILLIGRAM DAILY;
  4. TRAMADOL HYDROCHLORIDE. [Concomitant]
     Active Substance: TRAMADOL HYDROCHLORIDE
  5. ELLESTE-SOLO [Concomitant]
  6. CERAZETTE [Concomitant]
  7. PREGABALIN MYLAN [Concomitant]
     Active Substance: PREGABALIN
     Dosage: 600 MILLIGRAM DAILY;
  8. METRONIDAZOLE. [Suspect]
     Active Substance: METRONIDAZOLE
     Indication: PYELONEPHRITIS
     Route: 041
     Dates: start: 20060105, end: 20060106
  9. ORAMORPH [Concomitant]
     Active Substance: MORPHINE SULFATE
  10. FEXOFENADINE HYDROCHLORIDE. [Concomitant]
     Active Substance: FEXOFENADINE HYDROCHLORIDE
     Dosage: 180 MILLIGRAM DAILY;
  11. NITROFURANTOIN. [Concomitant]
     Active Substance: NITROFURANTOIN
  12. OMEPRAZOLE. [Concomitant]
     Active Substance: OMEPRAZOLE
     Dosage: 40 MILLIGRAM DAILY;

REACTIONS (1)
  - Anaphylactic reaction [Recovered/Resolved]
